FAERS Safety Report 25353907 (Version 1)
Quarter: 2025Q2

REPORT INFORMATION
  Report Type: Spontaneous
  Country: FR (occurrence: FR)
  Receive Date: 20250523
  Receipt Date: 20250523
  Transmission Date: 20250716
  Serious: Yes (Hospitalization)
  Sender: SHIONOGI
  Company Number: FR-AFSSAPS-MA2025000424

PATIENT
  Sex: Female

DRUGS (2)
  1. CEFIDEROCOL SULFATE TOSYLATE [Suspect]
     Active Substance: CEFIDEROCOL SULFATE TOSYLATE
     Indication: Post procedural cellulitis
     Route: 042
     Dates: start: 20250411, end: 20250416
  2. COLISTIMETHATE SODIUM [Suspect]
     Active Substance: COLISTIMETHATE SODIUM
     Indication: Post procedural cellulitis
     Route: 042
     Dates: start: 20250411, end: 20250416

REACTIONS (2)
  - Eosinophilia [Recovered/Resolved]
  - Rash maculo-papular [Recovered/Resolved]

NARRATIVE: CASE EVENT DATE: 20250415
